FAERS Safety Report 4463929-4 (Version None)
Quarter: 2004Q3

REPORT INFORMATION
  Report Type: 
  Country: None (occurrence: None)
  Receive Date: 20040929
  Receipt Date: 20040917
  Transmission Date: 20050211
  Serious: Yes (Hospitalization)
  Sender: FDA-Public Use
  Company Number: 040917-0000418

PATIENT
  Age: 1 Day
  Sex: Male

DRUGS (1)
  1. TRANXENE [Suspect]
     Indication: DRUG EXPOSURE DURING PREGNANCY
     Dosage: 1X; TRPL

REACTIONS (6)
  - APGAR SCORE LOW [None]
  - DRUG EXPOSURE DURING PREGNANCY [None]
  - DRUG LEVEL INCREASED [None]
  - FOETAL HEART RATE DECREASED [None]
  - LIFE SUPPORT [None]
  - SEDATION [None]
